FAERS Safety Report 4733029-4 (Version None)
Quarter: 2005Q3

REPORT INFORMATION
  Report Type: 
  Country: None (occurrence: None)
  Receive Date: 20050801
  Receipt Date: 20050722
  Transmission Date: 20060218
  Serious: Yes (Hospitalization)
  Sender: FDA-Public Use
  Company Number: ZONI002191

PATIENT
  Age: 80 Year
  Sex: Female

DRUGS (11)
  1. ZONISAMIDE [Suspect]
     Indication: CONVULSION PROPHYLAXIS
     Dosage: 200 MG, 2 IN 1 D, OTHER
     Dates: start: 20050505, end: 20050623
  2. LOXONIN (LOXOPROFEN SODIUM) [Suspect]
     Indication: PYREXIA
     Dosage: 180 MG, 3 IN 1 D, OTHER
     Dates: start: 20050610, end: 20050614
  3. DIGOXIN [Concomitant]
  4. MERCAZOLE (THIAMAZOLE) [Concomitant]
  5. LASIX [Concomitant]
  6. KLARICID : DRYSYRUP (CLARITHROMYCIN) [Concomitant]
  7. MIYA BM (MIYARI BACTERIA) [Concomitant]
  8. TANNALBIN (ALBUMIN TANNATE) [Concomitant]
  9. LEVOFLOXACIN [Concomitant]
  10. PANIPENEM (PANIPENEM) [Concomitant]
  11. CEFADROXIL (CEFAROXIL) [Concomitant]

REACTIONS (4)
  - PLEURAL EFFUSION [None]
  - PNEUMONIA [None]
  - PYREXIA [None]
  - STEVENS-JOHNSON SYNDROME [None]
